FAERS Safety Report 19614788 (Version 1)
Quarter: 2021Q3

REPORT INFORMATION
  Report Type: Spontaneous
  Country: AT (occurrence: AT)
  Receive Date: 20210727
  Receipt Date: 20210727
  Transmission Date: 20211014
  Serious: Yes (Other)
  Sender: FDA-Public Use
  Company Number: AT-PFIZER INC-2021879563

PATIENT
  Age: 75 Year
  Sex: Male
  Weight: 73 kg

DRUGS (7)
  1. IXEL [Suspect]
     Active Substance: MILNACIPRAN HYDROCHLORIDE
     Dosage: 100 MG
     Dates: start: 20210416, end: 20210419
  2. DUTAGLANDIN [Concomitant]
     Indication: URINARY RETENTION
     Dosage: 0.5 MG
  3. MOTRIM [Concomitant]
     Indication: URINARY RETENTION
     Dosage: UNK
  4. IXEL [Suspect]
     Active Substance: MILNACIPRAN HYDROCHLORIDE
     Dosage: 100 MG, DAILY
     Dates: start: 20210420
  5. ZOLDEM [Suspect]
     Active Substance: ZOLPIDEM TARTRATE
     Dosage: 10 MG
     Dates: start: 20210409, end: 20210517
  6. TEMESTA [LORAZEPAM] [Suspect]
     Active Substance: LORAZEPAM
     Dosage: 5 MG
     Dates: start: 20210419, end: 20210429
  7. MIRTAZAPIN [Suspect]
     Active Substance: MIRTAZAPINE
     Dosage: 30 MG
     Dates: start: 20210409, end: 20210426

REACTIONS (1)
  - Urinary retention [Recovering/Resolving]

NARRATIVE: CASE EVENT DATE: 20210425
